FAERS Safety Report 18775306 (Version 1)
Quarter: 2021Q1

REPORT INFORMATION
  Report Type: Report from Study
  Country: BR (occurrence: BR)
  Receive Date: 20210122
  Receipt Date: 20210122
  Transmission Date: 20210419
  Serious: Yes (Hospitalization)
  Sender: FDA-Public Use
  Company Number: NVSC2021BR011145

PATIENT
  Age: 71 Year
  Sex: Male

DRUGS (1)
  1. EXELON [Suspect]
     Active Substance: RIVASTIGMINE TARTRATE
     Indication: DEMENTIA ALZHEIMER^S TYPE
     Dosage: 54.6 MG
     Route: 062
     Dates: start: 201911

REACTIONS (2)
  - COVID-19 [Recovered/Resolved with Sequelae]
  - Muscle atrophy [Recovered/Resolved]

NARRATIVE: CASE EVENT DATE: 202011
